FAERS Safety Report 23150481 (Version 6)
Quarter: 2024Q2

REPORT INFORMATION
  Report Type: Spontaneous
  Country: CA (occurrence: CA)
  Receive Date: 20231106
  Receipt Date: 20240409
  Transmission Date: 20240716
  Serious: Yes (Other)
  Sender: FDA-Public Use
  Company Number: CA-KARYOPHARM-2023KPT001084

PATIENT

DRUGS (9)
  1. XPOVIO [Suspect]
     Active Substance: SELINEXOR
     Indication: Plasma cell myeloma
     Dosage: 60 MG, WEEKLY, FOR 5 WEEKS
     Route: 048
     Dates: start: 20230302, end: 202303
  2. XPOVIO [Suspect]
     Active Substance: SELINEXOR
     Dosage: 60 MG, WEEKLY ONCE A WEEK EVERY 7 DAYS
     Route: 048
     Dates: start: 20230926
  3. XPOVIO [Suspect]
     Active Substance: SELINEXOR
     Dosage: 60 MG, WEEKLY, FOR 5 WEEKS
     Route: 048
     Dates: start: 20230506, end: 20231024
  4. XPOVIO [Suspect]
     Active Substance: SELINEXOR
     Dosage: 40 MG EVERY 7 DAYS FOR 5 WEEKS
     Route: 048
  5. XPOVIO [Suspect]
     Active Substance: SELINEXOR
     Dosage: 60 MG, WEEKLY ON DAY 1,8,15 AND 22
     Route: 048
     Dates: start: 202402, end: 202404
  6. XPOVIO [Suspect]
     Active Substance: SELINEXOR
     Dosage: UNK
  7. BORTEZOMIB [Concomitant]
     Active Substance: BORTEZOMIB
     Dosage: UNK
     Dates: end: 202303
  8. DEXAMETHASONE [Concomitant]
     Active Substance: DEXAMETHASONE
     Dosage: UNK
  9. DILANTIN [Concomitant]
     Active Substance: PHENYTOIN
     Indication: Seizure
     Dosage: UNK

REACTIONS (5)
  - Radiation pneumonitis [Unknown]
  - Thrombocytopenia [Not Recovered/Not Resolved]
  - Cytopenia [Unknown]
  - Disease progression [Unknown]
  - Platelet count decreased [Recovering/Resolving]

NARRATIVE: CASE EVENT DATE: 20230101
